FAERS Safety Report 24456852 (Version 1)
Quarter: 2024Q4

REPORT INFORMATION
  Report Type: Spontaneous
  Country: US (occurrence: None)
  Receive Date: 20241018
  Receipt Date: 20241018
  Transmission Date: 20250115
  Serious: No
  Sender: ADAMAS PHARMA
  Company Number: US-ARIS GLOBAL-ADM202309-003674

PATIENT
  Age: 90 Year
  Sex: Female

DRUGS (7)
  1. GOCOVRI [Suspect]
     Active Substance: AMANTADINE
     Indication: Dyskinesia
     Dosage: NOT PROVIDED
     Route: 048
     Dates: start: 20230906
  2. GOCOVRI [Suspect]
     Active Substance: AMANTADINE
     Indication: Parkinson^s disease
  3. ATENOLOL [Concomitant]
     Active Substance: ATENOLOL
     Dosage: NOT PROVIDED
  4. CARBIDOPA\LEVODOPA [Concomitant]
     Active Substance: CARBIDOPA\LEVODOPA
     Dosage: EACH DF CONTAINS 10-100MG
  5. CILOSTAZOL [Concomitant]
     Active Substance: CILOSTAZOL
     Dosage: NOT PROVIDED
  6. MAGNESIUM [Concomitant]
     Active Substance: MAGNESIUM
     Dosage: NOT PROVIDED
  7. NIFEDIPINE [Concomitant]
     Active Substance: NIFEDIPINE
     Dosage: NOT PROVIDED

REACTIONS (3)
  - Dizziness [Not Recovered/Not Resolved]
  - Vision blurred [Not Recovered/Not Resolved]
  - Decreased appetite [Not Recovered/Not Resolved]

NARRATIVE: CASE EVENT DATE: 20230906
